FAERS Safety Report 7615607-8 (Version None)
Quarter: 2011Q3

REPORT INFORMATION
  Report Type: 
  Country: None (occurrence: None)
  Receive Date: 20110711
  Receipt Date: 20110613
  Transmission Date: 20111222
  Serious: Yes (Death)
  Sender: FDA-Public Use
  Company Number: 14618573

PATIENT
  Age: 77 Year
  Sex: Male

DRUGS (5)
  1. ENALAPRIL MALEATE [Concomitant]
  2. ATENOLOL TABS (ATENOLOL) [Concomitant]
  3. PLACEBO [Suspect]
     Indication: THROMBOSIS PROPHYLAXIS
     Dosage: ORAL
     Route: 048
     Dates: start: 20090305
  4. DIGOXIN TABS (DIGOXIN) [Concomitant]
  5. WARFARIN SODIUM [Suspect]
     Indication: THROMBOSIS PROPHYLAXIS
     Dosage: 4 MILLIGRAM 1 DAY ORAL
     Route: 048
     Dates: start: 20090305

REACTIONS (3)
  - CARDIAC DEATH [None]
  - HYDRONEPHROSIS [None]
  - ENCEPHALOPATHY [None]
